FAERS Safety Report 19176743 (Version 1)
Quarter: 2021Q2

REPORT INFORMATION
  Report Type: Spontaneous
  Country: US (occurrence: US)
  Receive Date: 20210424
  Receipt Date: 20210424
  Transmission Date: 20210717
  Serious: Yes (Life-Threatening, Hospitalization, Other)
  Sender: FDA-Public Use
  Company Number: US-UNITED THERAPEUTICS-UNT-2021-007312

PATIENT
  Sex: Male

DRUGS (2)
  1. REMODULIN [Suspect]
     Active Substance: TREPROSTINIL
     Indication: PULMONARY ARTERIAL HYPERTENSION
     Dosage: UNK, CONTINUING
     Route: 058
  2. REMODULIN [Suspect]
     Active Substance: TREPROSTINIL
     Indication: PULMONARY ARTERIAL HYPERTENSION
     Dosage: UNK, CONTINUING
     Route: 041

REACTIONS (11)
  - Infusion site pain [Unknown]
  - Infusion site erythema [Unknown]
  - Gallbladder disorder [Unknown]
  - Sepsis [Unknown]
  - Infusion site vesicles [Unknown]
  - Right ventricular failure [Unknown]
  - Infusion site pruritus [Unknown]
  - Brachiocephalic vein thrombosis [Unknown]
  - Infusion site swelling [Unknown]
  - Complication associated with device [Unknown]
  - Infusion site warmth [Unknown]
